FAERS Safety Report 13562151 (Version 5)
Quarter: 2018Q4

REPORT INFORMATION
  Report Type: Report from Study
  Country: None (occurrence: BR)
  Receive Date: 20170519
  Receipt Date: 20181121
  Transmission Date: 20190204
  Serious: Yes (Other)
  Sender: FDA-Public Use
  Company Number: BR-ABBVIE-17K-020-1972890-00

PATIENT
  Sex: Female
  Weight: 70 kg

DRUGS (5)
  1. HUMIRA [Suspect]
     Active Substance: ADALIMUMAB
     Indication: HIDRADENITIS
     Route: 058
     Dates: start: 20170309, end: 2017
  2. MICROVLAR [Concomitant]
     Active Substance: ETHINYL ESTRADIOL\LEVONORGESTREL
     Indication: CONTRACEPTION
     Route: 048
     Dates: start: 2008
  3. HUMIRA [Suspect]
     Active Substance: ADALIMUMAB
     Route: 058
  4. HUMIRA [Suspect]
     Active Substance: ADALIMUMAB
     Route: 058
     Dates: start: 20170817, end: 20170817
  5. OMEPRAZOLE. [Concomitant]
     Active Substance: OMEPRAZOLE
     Indication: GASTRITIS
     Route: 048
     Dates: start: 2009

REACTIONS (14)
  - Dyschezia [Not Recovered/Not Resolved]
  - Pruritus [Not Recovered/Not Resolved]
  - Groin abscess [Not Recovered/Not Resolved]
  - White blood cell disorder [Unknown]
  - Genital lesion [Not Recovered/Not Resolved]
  - Burning sensation [Not Recovered/Not Resolved]
  - Dysuria [Not Recovered/Not Resolved]
  - Mass [Unknown]
  - Bacterial infection [Unknown]
  - Drug effect incomplete [Not Recovered/Not Resolved]
  - Abscess [Recovering/Resolving]
  - Wound infection [Unknown]
  - Haemorrhage [Recovering/Resolving]
  - Bloody discharge [Unknown]

NARRATIVE: CASE EVENT DATE: 2017
